FAERS Safety Report 5010774-7 (Version None)
Quarter: 2006Q2

REPORT INFORMATION
  Report Type: 
  Country: None (occurrence: None)
  Receive Date: 20060525
  Receipt Date: 20060517
  Transmission Date: 20061013
  Serious: Yes (Other)
  Sender: FDA-Public Use
  Company Number: JP-ROCHE-448777

PATIENT
  Sex: Female

DRUGS (1)
  1. PEGASYS [Suspect]
     Dosage: DOSING: 90 MCG OR 180 MCG PER WEEK.
     Route: 058
     Dates: start: 20050115, end: 20050615

REACTIONS (1)
  - POLYMYALGIA RHEUMATICA [None]
